FAERS Safety Report 8530801-X (Version None)
Quarter: 2012Q3

REPORT INFORMATION
  Report Type: 
  Country: None (occurrence: None)
  Receive Date: 20120723
  Receipt Date: 20120712
  Transmission Date: 20120928
  Serious: Yes (Other)
  Sender: FDA-Public Use
  Company Number: JP-ASTRAZENECA-2012SE41408

PATIENT
  Age: 65 Year
  Sex: Female
  Weight: 38.5 kg

DRUGS (12)
  1. MAGNESIUM OXIDE [Concomitant]
  2. SEROQUEL [Suspect]
     Route: 048
     Dates: start: 20120416
  3. SLOWHEIM [Suspect]
     Indication: INSOMNIA
     Route: 048
     Dates: start: 20120406, end: 20120411
  4. MEMANTINE HCL [Concomitant]
     Indication: DEMENTIA
     Dates: start: 20120213, end: 20120306
  5. MAGNESIUM OXIDE [Concomitant]
     Indication: CONSTIPATION
     Dates: start: 20120220, end: 20120411
  6. SEROQUEL [Suspect]
     Dosage: FINE GRANULE ORAL 0.1 G -0.3 G ON AN AS NEED BASIS
     Route: 048
     Dates: start: 20120416
  7. YOKUKAN-SAN [Suspect]
     Indication: DEMENTIA
     Route: 065
     Dates: start: 20120322, end: 20120409
  8. SEROQUEL [Suspect]
     Indication: DEMENTIA
     Route: 048
     Dates: start: 20120215, end: 20120321
  9. DOGMATYL [Suspect]
     Indication: DECREASED APPETITE
     Route: 048
     Dates: start: 20120227, end: 20120411
  10. SEROQUEL [Suspect]
     Route: 048
  11. SLOWHEIM [Suspect]
     Indication: DEMENTIA
     Route: 048
     Dates: start: 20120406, end: 20120411
  12. DOGMATYL [Suspect]
     Indication: DEMENTIA
     Route: 048
     Dates: start: 20120227, end: 20120411

REACTIONS (2)
  - OFF LABEL USE [None]
  - HEPATIC FUNCTION ABNORMAL [None]
